FAERS Safety Report 7474698-8 (Version None)
Quarter: 2011Q2

REPORT INFORMATION
  Report Type: 
  Country: None (occurrence: None)
  Receive Date: 20110512
  Receipt Date: 20110427
  Transmission Date: 20111010
  Serious: Yes (Other)
  Sender: FDA-Public Use
  Company Number: KR-RANBAXY-2011RR-44188

PATIENT
  Age: 80 Year
  Sex: Male

DRUGS (11)
  1. ACETAMINOPHEN [Concomitant]
     Indication: URTICARIA
  2. RANITIDINE [Suspect]
  3. CIMETIDINE [Suspect]
     Indication: URTICARIA
  4. CARVEDILOL [Concomitant]
  5. FAMOTIDINE [Suspect]
  6. CHLORPHENAMINE [Concomitant]
     Indication: URTICARIA
  7. NICORANDIL [Concomitant]
  8. CIMETIDINE [Suspect]
  9. BUDESONIDE/ FORMOTEROL [Concomitant]
     Route: 055
  10. NITRATE [Concomitant]
  11. TRIFLUSAL [Concomitant]

REACTIONS (4)
  - URTICARIA [None]
  - DRUG HYPERSENSITIVITY [None]
  - CONFUSIONAL STATE [None]
  - ANAPHYLACTIC REACTION [None]
